FAERS Safety Report 7242842-3 (Version None)
Quarter: 2011Q1

REPORT INFORMATION
  Report Type: 
  Country: None (occurrence: None)
  Receive Date: 20110125
  Receipt Date: 20110115
  Transmission Date: 20110831
  Serious: Yes (Hospitalization)
  Sender: FDA-Public Use
  Company Number: PK-JNJFOC-20110106193

PATIENT
  Age: 3 Year
  Sex: Male

DRUGS (1)
  1. VERMOX [Suspect]
     Indication: HELMINTHIC INFECTION
     Route: 065

REACTIONS (3)
  - TOXICITY TO VARIOUS AGENTS [None]
  - DECREASED APPETITE [None]
  - LETHARGY [None]
